FAERS Safety Report 15639737 (Version 2)
Quarter: 2018Q4

REPORT INFORMATION
  Report Type: Spontaneous
  Country: JP (occurrence: JP)
  Receive Date: 20181120
  Receipt Date: 20181217
  Transmission Date: 20190205
  Serious: Yes (Hospitalization)
  Sender: FDA-Public Use
  Company Number: JP-PFIZER INC-2018468582

PATIENT
  Age: 69 Year
  Sex: Female

DRUGS (3)
  1. SULPIRIDE [Concomitant]
     Active Substance: SULPIRIDE
     Dosage: 150 MG, UNK
     Dates: start: 20180415
  2. REFLEX [Suspect]
     Active Substance: MIRTAZAPINE
     Indication: DEPRESSION
     Dosage: 30 MG, 1X/DAY
     Route: 048
     Dates: start: 20180415
  3. HALCION [Suspect]
     Active Substance: TRIAZOLAM
     Indication: INSOMNIA
     Dosage: 0.25 MG, 1X/DAY
     Route: 048
     Dates: start: 20180415

REACTIONS (3)
  - Fall [Recovering/Resolving]
  - Somnolence [Recovering/Resolving]
  - Open fracture [Recovering/Resolving]

NARRATIVE: CASE EVENT DATE: 20181010
